FAERS Safety Report 9743138 (Version 1)
Quarter: 2013Q4

REPORT INFORMATION
  Report Type: Spontaneous
  Country: US (occurrence: US)
  Receive Date: 20131210
  Receipt Date: 20131210
  Transmission Date: 20140711
  Serious: No
  Sender: FDA-Public Use
  Company Number: US-GILEAD-2009-0024330

PATIENT
  Sex: Female
  Weight: 76.66 kg

DRUGS (7)
  1. LETAIRIS [Suspect]
     Indication: PULMONARY ARTERIAL HYPERTENSION
     Route: 048
     Dates: start: 20090827
  2. LASIX [Concomitant]
  3. METOPROLOL [Concomitant]
  4. METOLAZONE [Concomitant]
  5. TRAMADOL [Concomitant]
  6. CLONAZEPAM [Concomitant]
  7. TRAZODONE [Concomitant]

REACTIONS (1)
  - Palpitations [Unknown]
